FAERS Safety Report 6125088-1 (Version None)
Quarter: 2009Q1

REPORT INFORMATION
  Report Type: 
  Country: None (occurrence: None)
  Receive Date: 20090319
  Receipt Date: 20090302
  Transmission Date: 20090719
  Serious: Yes (Death, Hospitalization)
  Sender: FDA-Public Use
  Company Number: NZ-MERCK-0404NZL00019

PATIENT
  Age: 79 Year
  Sex: Female

DRUGS (10)
  1. ZOCOR [Suspect]
     Route: 048
  2. ZOCOR [Suspect]
     Route: 048
  3. DILTIAZEM HYDROCHLORIDE [Suspect]
     Route: 048
  4. ESTROGENS (UNSPECIFIED) [Concomitant]
     Route: 065
  5. WARFARIN [Concomitant]
     Route: 065
  6. ISOSORBIDE MONONITRATE [Concomitant]
     Route: 065
  7. FUROSEMIDE [Concomitant]
     Route: 065
  8. PERHEXILINE MALEATE [Concomitant]
     Route: 065
  9. ATENOLOL [Concomitant]
     Route: 065
  10. PANTOPRAZOLE [Concomitant]
     Route: 065

REACTIONS (4)
  - CARDIAC FAILURE [None]
  - DRUG INTERACTION [None]
  - RENAL FAILURE ACUTE [None]
  - RHABDOMYOLYSIS [None]
